FAERS Safety Report 5530518-X (Version None)
Quarter: 2007Q4

REPORT INFORMATION
  Report Type: 
  Country: None (occurrence: None)
  Receive Date: 20071130
  Receipt Date: 20071119
  Transmission Date: 20080405
  Serious: Yes (Hospitalization)
  Sender: FDA-Public Use
  Company Number: FR-AVENTIS-200713680FR

PATIENT
  Age: 80 Year
  Sex: Male

DRUGS (7)
  1. IKOREL [Suspect]
     Route: 048
     Dates: end: 20070831
  2. LASIX [Suspect]
     Route: 048
     Dates: end: 20070831
  3. CORDARONE [Suspect]
     Route: 048
     Dates: end: 20070901
  4. NITRODERM [Suspect]
     Route: 062
     Dates: end: 20070831
  5. ISOPTIN [Suspect]
     Route: 048
     Dates: end: 20070831
  6. SERETIDE [Concomitant]
  7. BRONCHOKOD [Concomitant]

REACTIONS (6)
  - DEHYDRATION [None]
  - DRUG INTERACTION [None]
  - HYPERTHYROIDISM [None]
  - HYPONATRAEMIA [None]
  - HYPOTENSION [None]
  - RENAL FAILURE [None]
